FAERS Safety Report 7479385-8 (Version None)
Quarter: 2011Q2

REPORT INFORMATION
  Report Type: 
  Country: None (occurrence: None)
  Receive Date: 20110513
  Receipt Date: 20110509
  Transmission Date: 20111010
  Serious: Yes (Other)
  Sender: FDA-Public Use
  Company Number: GB-PFIZER INC-2011096535

PATIENT
  Age: 21 Year
  Sex: Female

DRUGS (4)
  1. FLUCONAZOLE [Concomitant]
     Indication: ORAL CANDIDIASIS
     Dosage: UNK
  2. GEMTUZUMAB OZOGAMICIN [Suspect]
     Dosage: UNK
     Dates: start: 20110328
  3. CYTARABINE [Suspect]
  4. DAUNORUBICIN HCL [Suspect]

REACTIONS (1)
  - HEPATOTOXICITY [None]
